FAERS Safety Report 22225190 (Version 1)
Quarter: 2023Q2

REPORT INFORMATION
  Report Type: Spontaneous
  Country: US (occurrence: None)
  Receive Date: 20230417
  Receipt Date: 20230417
  Transmission Date: 20230722
  Serious: Yes (Hospitalization)
  Sender: FDA-Public Use
  Company Number: None

PATIENT
  Sex: Female

DRUGS (16)
  1. MYCOPHENOLIC ACID [Suspect]
     Active Substance: MYCOPHENOLIC ACID
     Indication: Renal transplant
     Route: 048
     Dates: start: 20150804
  2. ACYCLOVIR CAP [Concomitant]
  3. ATENOLOL [Concomitant]
     Active Substance: ATENOLOL
  4. ATORVASTATIN [Concomitant]
     Active Substance: ATORVASTATIN
  5. BETAMETHASONE DIPROPIONATE [Concomitant]
     Active Substance: BETAMETHASONE DIPROPIONATE
  6. CALCITRIOL CAP [Concomitant]
  7. EZETIMIBE TAB [Concomitant]
  8. METRONIDAZOL TAB [Concomitant]
  9. OXYCODONE [Concomitant]
  10. PLAVIX TAB [Concomitant]
  11. PREDNISONE [Concomitant]
     Active Substance: PREDNISONE
  12. PROBIOTIC CAP COMPLEX [Concomitant]
  13. TACROLIMUS OIN [Concomitant]
  14. TACROLIMUS [Concomitant]
     Active Substance: TACROLIMUS
  15. TRETINOIN [Concomitant]
     Active Substance: TRETINOIN
  16. VITAMIN D3 CAP [Concomitant]

REACTIONS (2)
  - COVID-19 [None]
  - Therapy interrupted [None]
